FAERS Safety Report 4402947-9 (Version None)
Quarter: 2004Q3

REPORT INFORMATION
  Report Type: 
  Country: None (occurrence: None)
  Receive Date: 20040721
  Receipt Date: 20030708
  Transmission Date: 20050211
  Serious: No
  Sender: FDA-Public Use
  Company Number: US-GLAXOSMITHKLINE-A0415782A

PATIENT
  Age: 75 Year
  Sex: Female

DRUGS (5)
  1. IMITREX [Suspect]
     Indication: MIGRAINE
     Dosage: 50MG AS REQUIRED
     Route: 048
     Dates: start: 20030703, end: 20030708
  2. IMITREX [Suspect]
     Route: 058
  3. TOPAMAX [Concomitant]
  4. CELEBREX [Concomitant]
  5. ATIVAN [Concomitant]

REACTIONS (3)
  - INSOMNIA [None]
  - RESTLESSNESS [None]
  - THROAT TIGHTNESS [None]
